FAERS Safety Report 4290899-4 (Version None)
Quarter: 2004Q1

REPORT INFORMATION
  Report Type: 
  Country: None (occurrence: None)
  Receive Date: 20040209
  Receipt Date: 20040126
  Transmission Date: 20041129
  Serious: Yes (Life-Threatening, Hospitalization)
  Sender: FDA-Public Use
  Company Number: 2004005828

PATIENT
  Age: 20 Year
  Sex: Male

DRUGS (4)
  1. ZELDOX (CAPSULES) (ZIPRASIDONE) [Suspect]
     Indication: SCHIZOPHRENIA
     Dosage: 120 MG (BID), ORAL
     Route: 048
     Dates: start: 20031101
  2. DIAZEPAM [Concomitant]
  3. BIPERIDEN HYDROCHLORIDE TAB [Concomitant]
  4. ALPRAZOLAM [Concomitant]

REACTIONS (3)
  - ANXIETY [None]
  - SUICIDE ATTEMPT [None]
  - TREATMENT NONCOMPLIANCE [None]
